FAERS Safety Report 23915542 (Version 1)
Quarter: 2024Q2

REPORT INFORMATION
  Report Type: Spontaneous
  Country: US (occurrence: None)
  Receive Date: 20240528
  Receipt Date: 20240528
  Transmission Date: 20240715
  Serious: Yes (Disabling)
  Sender: FDA-Public Use
  Company Number: None

PATIENT
  Age: 45 Year
  Sex: Female
  Weight: 83.25 kg

DRUGS (1)
  1. CLONIDINE [Suspect]
     Active Substance: CLONIDINE
     Indication: Anxiety
     Dates: start: 20231003, end: 20231003

REACTIONS (4)
  - Off label use [None]
  - Feeling abnormal [None]
  - Tinnitus [None]
  - Deafness [None]

NARRATIVE: CASE EVENT DATE: 20231003
